FAERS Safety Report 4344827-3 (Version None)
Quarter: 2004Q2

REPORT INFORMATION
  Report Type: 
  Country: None (occurrence: None)
  Receive Date: 20040420
  Receipt Date: 20040406
  Transmission Date: 20050107
  Serious: Yes (Hospitalization)
  Sender: FDA-Public Use
  Company Number: DE-SHR-03-018052

PATIENT
  Age: 24 Year
  Sex: Female

DRUGS (3)
  1. BETASERON [Suspect]
     Indication: MULTIPLE SCLEROSIS
     Dosage: 8 MIU, 3X/WEEK, SUBCUTANEOUS
     Route: 058
     Dates: start: 20031110, end: 20031202
  2. ACETAMINOPHEN [Suspect]
     Indication: PYREXIA
     Dosage: 1000 MG, 4X/DAY, ORAL
     Route: 048
     Dates: start: 20031110, end: 20031203
  3. VALETTE [Concomitant]

REACTIONS (3)
  - HEPATITIS ACUTE [None]
  - INFLUENZA LIKE ILLNESS [None]
  - PYREXIA [None]
